FAERS Safety Report 18906457 (Version 1)
Quarter: 2021Q1

REPORT INFORMATION
  Report Type: Spontaneous
  Country: CA (occurrence: CA)
  Receive Date: 20210218
  Receipt Date: 20210218
  Transmission Date: 20210420
  Serious: Yes (Other)
  Sender: FDA-Public Use
  Company Number: CA-AUROBINDO-AUR-APL-2021-006264

PATIENT
  Age: 11 Year
  Sex: Female

DRUGS (4)
  1. GANCICLOVIR. [Suspect]
     Active Substance: GANCICLOVIR
     Indication: CYTOMEGALOVIRUS VIRAEMIA
     Dosage: UNK
     Route: 065
  2. CEPHALEXIN. [Suspect]
     Active Substance: CEPHALEXIN
     Indication: INFECTION PROPHYLAXIS
     Dosage: UNK
     Route: 065
  3. ABATACEPT [Suspect]
     Active Substance: ABATACEPT
     Indication: GENE MUTATION
     Dosage: 20 MILLIGRAM/KILOGRAM
     Route: 065
  4. SIROLIMUS. [Suspect]
     Active Substance: SIROLIMUS
     Indication: GENE MUTATION
     Dosage: 1.3 MILLIGRAM, TWO TIMES A DAY
     Route: 065

REACTIONS (6)
  - Immune thrombocytopenia [Unknown]
  - Renal failure [Unknown]
  - Hypokalaemia [Unknown]
  - Product use issue [Unknown]
  - Neutropenia [Unknown]
  - Bronchiectasis [Unknown]
